FAERS Safety Report 19866230 (Version 1)
Quarter: 2021Q3

REPORT INFORMATION
  Report Type: Spontaneous
  Country: HK (occurrence: HK)
  Receive Date: 20210922
  Receipt Date: 20210922
  Transmission Date: 20211014
  Serious: Yes (Other)
  Sender: FDA-Public Use
  Company Number: HK-ROCHE-2914108

PATIENT
  Age: 79 Year
  Sex: Female

DRUGS (4)
  1. RITUXIMAB. [Suspect]
     Active Substance: RITUXIMAB
     Indication: LYMPHOCYTIC LYMPHOMA
     Route: 065
     Dates: start: 202103
  2. BENDAMUSTINE [Suspect]
     Active Substance: BENDAMUSTINE
     Indication: LYMPHOCYTIC LYMPHOMA
     Route: 065
     Dates: start: 202103
  3. CHLORAMBUCIL [Concomitant]
     Active Substance: CHLORAMBUCIL
     Route: 048
  4. ENDOXAN [Concomitant]
     Active Substance: CYCLOPHOSPHAMIDE

REACTIONS (4)
  - Drug ineffective [Unknown]
  - High-grade B-cell lymphoma [Unknown]
  - Metastatic lymphoma [Unknown]
  - Pleural effusion [Unknown]
